FAERS Safety Report 15225554 (Version 6)
Quarter: 2020Q3

REPORT INFORMATION
  Report Type: Spontaneous
  Country: PT (occurrence: PT)
  Receive Date: 20180801
  Receipt Date: 20200706
  Transmission Date: 20201102
  Serious: Yes (Life-Threatening, Hospitalization, Other)
  Sender: FDA-Public Use
  Company Number: PT-AUROBINDO-AUR-APL-2018-038232

PATIENT
  Age: 51 Year
  Sex: Female
  Weight: 72 kg

DRUGS (22)
  1. TOPIRAMATE FILM?COATED TABLET [Interacting]
     Active Substance: TOPIRAMATE
     Indication: WEIGHT CONTROL
  2. HOODIA GORDONII [Interacting]
     Active Substance: DIETARY SUPPLEMENT
     Indication: WEIGHT CONTROL
  3. LEVOTHYROXINE SODIUM. [Concomitant]
     Active Substance: LEVOTHYROXINE SODIUM
     Dosage: 0.1 MILLIGRAM, EVERY 1 YEAR
     Route: 065
     Dates: start: 2014
  4. FUROSEMIDE TABLETS [Suspect]
     Active Substance: FUROSEMIDE
     Indication: WEIGHT DECREASED
     Dosage: 30 MILLIGRAM, TWO TIMES A DAY (60 MILLIGRAM ONCE A DAY)
     Route: 048
     Dates: start: 201706, end: 201807
  5. CASCARA [Interacting]
     Active Substance: RHAMNUS PURSHIANA BARK EXTRACT
     Indication: WEIGHT DECREASED
     Dosage: 60 MILLIGRAM, TWO TIMES A DAY (120 MILLIGRAM, DAILY)
     Route: 048
     Dates: start: 201706, end: 201807
  6. LEVOTHYROXINE SODIUM. [Concomitant]
     Active Substance: LEVOTHYROXINE SODIUM
     Indication: HYPOTHYROIDISM
     Dosage: 0.1 MILLIGRAM, ONCE A DAY
     Route: 048
     Dates: start: 2014
  7. FUROSEMIDE TABLETS [Interacting]
     Active Substance: FUROSEMIDE
     Indication: WEIGHT CONTROL
  8. TOPIRAMATE FILM?COATED TABLET [Interacting]
     Active Substance: TOPIRAMATE
     Indication: WEIGHT DECREASED
     Dosage: 35 MILLIGRAM, TWO TIMES A DAY, (70 MILLIGRAM, DAILY)
     Route: 048
     Dates: start: 201706
  9. CHLORDIAZEPOXIDE. [Interacting]
     Active Substance: CHLORDIAZEPOXIDE
     Indication: WEIGHT CONTROL
  10. METFORMIN FILM?COATED TABLET [Interacting]
     Active Substance: METFORMIN HYDROCHLORIDE
     Indication: WEIGHT CONTROL
  11. TRI?GYNERA [Interacting]
     Active Substance: ETHINYL ESTRADIOL\GESTODENE
     Indication: CONTRACEPTION
     Dosage: 1 DOSAGE FORM, ONCE A DAY
     Route: 048
     Dates: start: 2002, end: 201807
  12. TRI?GYNERA [Interacting]
     Active Substance: ETHINYL ESTRADIOL\GESTODENE
     Indication: ORAL CONTRACEPTION
  13. CITRUS AURANTIUM [Suspect]
     Active Substance: HERBALS
     Indication: WEIGHT DECREASED
     Dosage: 400 MILLIGRAM, ONCE A DAY
     Route: 048
     Dates: start: 201706, end: 201807
  14. BUPROPION. [Interacting]
     Active Substance: BUPROPION
     Indication: WEIGHT CONTROL
     Dosage: 120 MILLIGRAM, TWO TIMES A DAY
     Route: 048
     Dates: start: 201706, end: 201807
  15. CASCARA [Interacting]
     Active Substance: RHAMNUS PURSHIANA BARK EXTRACT
     Indication: WEIGHT CONTROL
  16. BUPROPION. [Interacting]
     Active Substance: BUPROPION
     Indication: WEIGHT DECREASED
     Dosage: 240 MILLIGRAM, TWO TIMES A DAY
     Route: 048
     Dates: start: 201706, end: 201807
  17. METFORMIN FILM?COATED TABLET [Interacting]
     Active Substance: METFORMIN HYDROCHLORIDE
     Indication: WEIGHT DECREASED
     Dosage: 230 MILLIGRAM, TWO TIMES A DAY (460 MILLIGRAM, DAILY)
     Route: 048
     Dates: start: 201706, end: 201807
  18. CHLORDIAZEPOXIDE. [Interacting]
     Active Substance: CHLORDIAZEPOXIDE
     Indication: WEIGHT DECREASED
     Dosage: 10 MILLIGRAM, TWO TIMES A DAY (20 MG DAILY)
     Route: 048
     Dates: start: 201706, end: 201807
  19. ETHINYLESTRADIOL+GESTODENE 0.03MG/0.075 MG COATED TABLETS [Suspect]
     Active Substance: ETHINYL ESTRADIOL\GESTODENE
     Indication: WEIGHT DECREASED
     Dosage: UNK, (0.03  / 0.075 MG)
     Route: 048
  20. ETHINYLESTRADIOL+GESTODENE 0.03MG/0.075 MG COATED TABLETS [Suspect]
     Active Substance: ETHINYL ESTRADIOL\GESTODENE
     Indication: WEIGHT CONTROL
  21. HOODIA GORDONII [Interacting]
     Active Substance: DIETARY SUPPLEMENT
     Indication: WEIGHT DECREASED
     Dosage: 70 MILLIGRAM, TWO TIMES A DAY (140 MG, DAILY)
     Route: 048
     Dates: start: 201706, end: 201807
  22. FRANGULA PURSHIANA [Suspect]
     Active Substance: HERBALS
     Indication: WEIGHT DECREASED
     Dosage: 120 MILLIGRAM, ONCE A DAY
     Route: 048
     Dates: start: 201706, end: 201807

REACTIONS (5)
  - Intentional product misuse [Unknown]
  - Product use in unapproved indication [Unknown]
  - Drug interaction [Unknown]
  - Cerebral venous thrombosis [Recovered/Resolved]
  - Headache [Recovered/Resolved]

NARRATIVE: CASE EVENT DATE: 20180619
